FAERS Safety Report 10089157 (Version 1)
Quarter: 2014Q2

REPORT INFORMATION
  Report Type: Report from Study
  Country: US (occurrence: US)
  Receive Date: 20140421
  Receipt Date: 20140421
  Transmission Date: 20141212
  Serious: Yes (Hospitalization, Other)
  Sender: FDA-Public Use
  Company Number: US-ROCHE-1379610

PATIENT
  Sex: Female
  Weight: 18 kg

DRUGS (3)
  1. NUTROPIN AQ [Suspect]
     Indication: TURNER^S SYNDROME
     Route: 058
  2. NORDITROPIN [Concomitant]
     Route: 058
  3. FLONASE [Concomitant]
     Dosage: 2 SPRAYS EACH NOSTRIL DOSE 16 GRAM
     Route: 045

REACTIONS (11)
  - Aorta coarctation repair [Unknown]
  - Ear tube insertion [Unknown]
  - Sinusitis [Unknown]
  - Ear infection [Unknown]
  - Speech disorder developmental [Unknown]
  - Developmental delay [Unknown]
  - Pain in extremity [Unknown]
  - Muscular weakness [Unknown]
  - Fatigue [Unknown]
  - Muscular weakness [Unknown]
  - Lymphoedema [Unknown]
